FAERS Safety Report 21301428 (Version 1)
Quarter: 2022Q3

REPORT INFORMATION
  Report Type: Spontaneous
  Country: US (occurrence: US)
  Receive Date: 20220907
  Receipt Date: 20220907
  Transmission Date: 20221027
  Serious: Yes (Other)
  Sender: FDA-Public Use
  Company Number: US-NOVARTISPH-NVSC2022US190410

PATIENT
  Age: 84 Year
  Sex: Female

DRUGS (2)
  1. DIGOXIN [Interacting]
     Active Substance: DIGOXIN
     Indication: Atrial fibrillation
     Dosage: UNK
     Route: 065
  2. AMIODARONE [Interacting]
     Active Substance: AMIODARONE
     Indication: Atrial fibrillation
     Dosage: UNK
     Route: 065

REACTIONS (6)
  - Hyperkalaemia [Unknown]
  - Acute kidney injury [Unknown]
  - Cardioactive drug level increased [Unknown]
  - Toxicity to various agents [Unknown]
  - Drug interaction [Unknown]
  - Dehydration [Unknown]
